FAERS Safety Report 9470936 (Version 1)
Quarter: 2013Q3

REPORT INFORMATION
  Report Type: Spontaneous
  Country: US (occurrence: None)
  Receive Date: 20130820
  Receipt Date: 20130820
  Transmission Date: 20140515
  Serious: Yes (Death, Life-Threatening, Hospitalization, Disabling)
  Sender: FDA-Public Use
  Company Number: None

PATIENT
  Sex: Male
  Weight: 117.94 kg

DRUGS (2)
  1. CORTISONE [Suspect]
     Indication: MUSCULOSKELETAL PAIN
     Dates: start: 1981, end: 1989
  2. CORTISONE [Suspect]
     Indication: ARTHRALGIA
     Dates: start: 1981, end: 1989

REACTIONS (2)
  - General physical health deterioration [None]
  - Meningitis [None]
